FAERS Safety Report 9438133 (Version 1)
Quarter: 2013Q3

REPORT INFORMATION
  Report Type: Spontaneous
  Country: US (occurrence: US)
  Receive Date: 20130802
  Receipt Date: 20130802
  Transmission Date: 20140515
  Serious: No
  Sender: FDA-Public Use
  Company Number: US-BRISTOL-MYERS SQUIBB COMPANY-16913519

PATIENT
  Sex: Male

DRUGS (3)
  1. COUMADIN TABS [Suspect]
     Indication: PULMONARY EMBOLISM
     Dosage: 10MG 5DAYS/WEEK,5MGTABS 2DAYS/WEEKLOT:9826EXP:02/15
     Route: 048
  2. COUMADIN TABS [Suspect]
     Indication: HEART VALVE REPLACEMENT
     Dosage: 10MG 5DAYS/WEEK,5MGTABS 2DAYS/WEEKLOT:9826EXP:02/15
     Route: 048
  3. COUMADIN TABS [Suspect]
     Indication: DEEP VEIN THROMBOSIS
     Dosage: 10MG 5DAYS/WEEK,5MGTABS 2DAYS/WEEKLOT:9826EXP:02/15
     Route: 048

REACTIONS (5)
  - Nausea [Unknown]
  - Headache [Unknown]
  - Pain in extremity [Unknown]
  - Dizziness [Unknown]
  - Hyperhidrosis [Unknown]
